FAERS Safety Report 10144091 (Version 1)
Quarter: 2014Q2

REPORT INFORMATION
  Report Type: Report from Study
  Country: US (occurrence: US)
  Receive Date: 20140430
  Receipt Date: 20140430
  Transmission Date: 20141212
  Serious: Yes (Hospitalization, Other)
  Sender: FDA-Public Use
  Company Number: US-ABBVIE-14P-163-1228019-00

PATIENT
  Age: 69 Year
  Sex: Female
  Weight: 82.63 kg

DRUGS (14)
  1. HUMIRA [Suspect]
     Indication: PSORIATIC ARTHROPATHY
     Dates: start: 2009, end: 20101017
  2. HUMIRA [Suspect]
     Dates: start: 201301
  3. ARMOUR THYROID [Suspect]
     Indication: HYPOTHYROIDISM
  4. ZOCOR [Suspect]
     Indication: BLOOD CHOLESTEROL INCREASED
     Dates: start: 201306
  5. ARAVA [Suspect]
     Indication: PSORIATIC ARTHROPATHY
  6. MULTIVITAMIN [Concomitant]
     Indication: VITAMIN SUPPLEMENTATION
  7. CALCIUM [Concomitant]
     Indication: MINERAL SUPPLEMENTATION
  8. ESTRADIOL [Concomitant]
     Indication: HORMONE REPLACEMENT THERAPY
  9. FLUOXETINE [Concomitant]
     Indication: FIBROMYALGIA
  10. PRAVASTATIN [Concomitant]
     Indication: BLOOD CHOLESTEROL INCREASED
  11. TRAZODONE [Concomitant]
     Indication: FIBROMYALGIA
  12. LASIX [Concomitant]
     Indication: FLUID RETENTION
  13. DIPHENHYDRAMINE [Concomitant]
     Indication: RHINORRHOEA
  14. IMODIUM [Concomitant]
     Indication: DIARRHOEA

REACTIONS (15)
  - Heart rate decreased [Recovered/Resolved]
  - Fall [Recovered/Resolved]
  - Lower limb fracture [Not Recovered/Not Resolved]
  - Impaired healing [Recovered/Resolved]
  - Chest discomfort [Recovered/Resolved]
  - Myocardial infarction [Recovered/Resolved]
  - Lipoma [Not Recovered/Not Resolved]
  - Hepatic enzyme increased [Recovered/Resolved]
  - Pernicious anaemia [Not Recovered/Not Resolved]
  - Hepatic enzyme increased [Recovered/Resolved]
  - C-reactive protein increased [Unknown]
  - Arthralgia [Not Recovered/Not Resolved]
  - Back pain [Not Recovered/Not Resolved]
  - Incorrect dose administered [Not Recovered/Not Resolved]
  - Vitamin D decreased [Not Recovered/Not Resolved]
